FAERS Safety Report 9818141 (Version 2)
Quarter: 2014Q2

REPORT INFORMATION
  Report Type: Report from Study
  Country: US (occurrence: US)
  Receive Date: 20140115
  Receipt Date: 20140505
  Transmission Date: 20141212
  Serious: Yes (Other)
  Sender: FDA-Public Use
  Company Number: PHEH2014US000963

PATIENT
  Age: 57 Year
  Sex: Female

DRUGS (1)
  1. GILENYA [Suspect]
     Indication: MULTIPLE SCLEROSIS
     Dosage: 0.5 MG, QD
     Route: 048
     Dates: start: 20140108

REACTIONS (5)
  - Heart rate abnormal [Not Recovered/Not Resolved]
  - Electrocardiogram QT prolonged [Unknown]
  - Nausea [Unknown]
  - Blood pressure increased [Recovering/Resolving]
  - Headache [Recovered/Resolved]
